FAERS Safety Report 10958718 (Version 3)
Quarter: 2016Q1

REPORT INFORMATION
  Report Type: Spontaneous
  Country: US (occurrence: US)
  Receive Date: 20150326
  Receipt Date: 20160111
  Transmission Date: 20160525
  Serious: Yes (Other)
  Sender: FDA-Public Use
  Company Number: US-BAYER-2015-068239

PATIENT
  Age: 27 Year
  Sex: Female
  Weight: 59 kg

DRUGS (1)
  1. MIRENA [Suspect]
     Active Substance: LEVONORGESTREL
     Indication: CONTRACEPTION
     Dosage: 20 MCG/24HR, CONT
     Route: 015
     Dates: start: 200810, end: 20081121

REACTIONS (8)
  - Uterine perforation [None]
  - Pain [None]
  - Procedural pain [Not Recovered/Not Resolved]
  - Device issue [None]
  - Haemorrhage in pregnancy [None]
  - Wound dehiscence [None]
  - Injury [None]
  - Maternal exposure before pregnancy [None]

NARRATIVE: CASE EVENT DATE: 200810
